FAERS Safety Report 4994156-X (Version None)
Quarter: 2006Q2

REPORT INFORMATION
  Report Type: 
  Country: None (occurrence: None)
  Receive Date: 20060505
  Receipt Date: 20060425
  Transmission Date: 20061013
  Serious: Yes (Hospitalization)
  Sender: FDA-Public Use
  Company Number: FR-SANOFI-SYNTHELABO-A02200601089

PATIENT
  Age: 52 Year
  Sex: Male

DRUGS (11)
  1. XATRAL [Suspect]
     Indication: DRUG USE FOR UNKNOWN INDICATION
     Route: 048
     Dates: start: 20060224
  2. ACICLOVIR MERCK [Suspect]
     Indication: DRUG USE FOR UNKNOWN INDICATION
     Route: 042
     Dates: start: 20060308, end: 20060309
  3. MOPRAL [Suspect]
     Indication: DRUG USE FOR UNKNOWN INDICATION
     Route: 048
     Dates: start: 20060302
  4. INDOCID [Suspect]
     Indication: DRUG USE FOR UNKNOWN INDICATION
     Dosage: 2 DF
     Route: 048
     Dates: start: 20060308
  5. MORPHINE CHLORHYDRATE [Suspect]
     Indication: DRUG USE FOR UNKNOWN INDICATION
     Dates: start: 20060308, end: 20060309
  6. TRIFLUCAN [Suspect]
     Indication: DRUG USE FOR UNKNOWN INDICATION
     Route: 042
     Dates: start: 20060308
  7. GARDENAL [Concomitant]
     Dosage: 100 MG
     Route: 048
     Dates: start: 20060220
  8. LOVENOX [Concomitant]
     Route: 048
     Dates: start: 20060220
  9. NOZINAN [Concomitant]
     Route: 048
  10. BISOPROLOL [Concomitant]
     Route: 048
     Dates: start: 20060224
  11. PROZAC [Concomitant]
     Route: 048
     Dates: start: 20060220

REACTIONS (6)
  - COMA [None]
  - DYSPNOEA [None]
  - HYPOTENSION [None]
  - MIOSIS [None]
  - RESPIRATORY DISORDER [None]
  - URINARY RETENTION [None]
